FAERS Safety Report 9492343 (Version 2)
Quarter: 2013Q4

REPORT INFORMATION
  Report Type: Spontaneous
  Country: AT (occurrence: AT)
  Receive Date: 20130830
  Receipt Date: 20131218
  Transmission Date: 20140711
  Serious: Yes (Hospitalization, Other)
  Sender: FDA-Public Use
  Company Number: PHHY2013AT094402

PATIENT
  Sex: Female
  Weight: 72 kg

DRUGS (3)
  1. GLIVEC [Suspect]
     Indication: CHRONIC MYELOID LEUKAEMIA
     Dosage: 400 MG
     Route: 048
     Dates: start: 20060626, end: 20060902
  2. GLIVEC [Suspect]
     Dosage: 200 MG, DAILY
  3. SPRYCEL//DASATINIB [Suspect]
     Dosage: 100 MG, UNK
     Dates: start: 20100302, end: 20100310

REACTIONS (5)
  - Pleural effusion [Recovering/Resolving]
  - Renal disorder [Not Recovered/Not Resolved]
  - Urinary retention [Not Recovered/Not Resolved]
  - Blood creatinine increased [Unknown]
  - Red blood cell count decreased [Unknown]
